FAERS Safety Report 23549534 (Version 3)
Quarter: 2024Q1

REPORT INFORMATION
  Report Type: Report from Study
  Country: EG (occurrence: EG)
  Receive Date: 20240221
  Receipt Date: 20240311
  Transmission Date: 20240410
  Serious: Yes (Other)
  Sender: FDA-Public Use
  Company Number: EG-SANDOZ-SDZ2024EG017453

PATIENT
  Age: 7 Year
  Sex: Male
  Weight: 20 kg

DRUGS (2)
  1. OMNITROPE [Suspect]
     Active Substance: SOMATROPIN
     Indication: Growth hormone deficiency
     Dosage: 0.7 MG, QD
     Route: 058
     Dates: start: 20230906
  2. ZINC [Concomitant]
     Active Substance: PYRITHIONE ZINC\ZINC\ZINC CHLORIDE
     Indication: Medical diet
     Dosage: UNK, QD
     Route: 048
     Dates: start: 202401

REACTIONS (6)
  - Injection site pain [Not Recovered/Not Resolved]
  - Epistaxis [Recovering/Resolving]
  - Injection site haemorrhage [Not Recovered/Not Resolved]
  - Needle issue [Unknown]
  - Wrong technique in product usage process [Not Recovered/Not Resolved]
  - Device issue [Unknown]

NARRATIVE: CASE EVENT DATE: 20230906
